FAERS Safety Report 7306979-2 (Version None)
Quarter: 2011Q1

REPORT INFORMATION
  Report Type: 
  Country: None (occurrence: None)
  Receive Date: 20110223
  Receipt Date: 20110214
  Transmission Date: 20110831
  Serious: No
  Sender: FDA-Public Use
  Company Number: US-BIOGENIDEC-2011BI005636

PATIENT
  Age: 49 Year
  Sex: Female

DRUGS (1)
  1. TYSABRI [Suspect]
     Indication: MULTIPLE SCLEROSIS
     Route: 042
     Dates: start: 20100323

REACTIONS (6)
  - COUGH [None]
  - ABDOMINAL DISCOMFORT [None]
  - PRODUCTIVE COUGH [None]
  - EAR PAIN [None]
  - HEADACHE [None]
  - OROPHARYNGEAL PAIN [None]
